FAERS Safety Report 18070419 (Version 1)
Quarter: 2020Q3

REPORT INFORMATION
  Report Type: Spontaneous
  Country: US (occurrence: US)
  Receive Date: 20200727
  Receipt Date: 20200727
  Transmission Date: 20201103
  Serious: No
  Sender: FDA-Public Use
  Company Number: US-KAMADA LIMITED-2020US001144

PATIENT

DRUGS (25)
  1. BIOTIN [Concomitant]
     Active Substance: BIOTIN
     Dosage: UNKNOWN
     Route: 065
  2. ZYRTEC [Concomitant]
     Active Substance: CETIRIZINE HYDROCHLORIDE
     Dosage: UNKNOWN
     Route: 065
  3. VITAMIN B12 [Concomitant]
     Active Substance: CYANOCOBALAMIN
     Dosage: UNKNOWN
     Route: 065
  4. DIPHENHYDRAMINE. [Concomitant]
     Active Substance: DIPHENHYDRAMINE
     Dosage: UNKNOWN
     Route: 065
  5. URIBEL [Concomitant]
     Active Substance: HYOSCYAMINE SULFATE\METHENAMINE\METHYLENE BLUE\PHENYL SALICYLATE\SODIUM PHOSPHATE, MONOBASIC, MONOHYDRATE
     Dosage: UNKNOWN
     Route: 065
  6. TRAZODONE [Concomitant]
     Active Substance: TRAZODONE HYDROCHLORIDE
     Dosage: UNKNOWN
     Route: 065
  7. VITAMIN E [Concomitant]
     Active Substance: .ALPHA.-TOCOPHEROL
     Dosage: UNKNOWN
     Route: 065
  8. SODIUM CHLORIDE. [Concomitant]
     Active Substance: SODIUM CHLORIDE
     Dosage: UNKNOWN
     Route: 065
  9. ASPIRIN [ACETYLSALICYLIC ACID] [Concomitant]
     Active Substance: ASPIRIN
     Dosage: UNKNOWN
     Route: 065
  10. NASACORT [Concomitant]
     Active Substance: TRIAMCINOLONE ACETONIDE
     Dosage: UNKNOWN
     Route: 065
  11. PRAVASTATIN. [Concomitant]
     Active Substance: PRAVASTATIN
     Dosage: UNKNOWN
     Route: 065
  12. OMEPRAZOLE. [Concomitant]
     Active Substance: OMEPRAZOLE
     Dosage: UNKNOWN
     Route: 065
  13. LMX4 [Concomitant]
     Active Substance: LIDOCAINE
     Dosage: UNKNOWN
     Route: 065
  14. TRELEGY ELLIPTA [Concomitant]
     Active Substance: FLUTICASONE FUROATE\UMECLIDINIUM BROMIDE\VILANTEROL TRIFENATATE
     Dosage: UNKNOWN
     Route: 065
  15. EPINEPHRINE. [Concomitant]
     Active Substance: EPINEPHRINE
     Dosage: UNKNOWN
     Route: 065
  16. EXCEDRIN [CAFFEINE;PARACETAMOL] [Concomitant]
     Active Substance: ACETAMINOPHEN\CAFFEINE
     Dosage: UNKNOWN
     Route: 065
  17. VENTOLIN [Concomitant]
     Active Substance: ALBUTEROL SULFATE
     Dosage: UNKNOWN
     Route: 065
  18. ALLEGRA [Concomitant]
     Active Substance: FEXOFENADINE HYDROCHLORIDE
     Dosage: UNKNOWN
     Route: 065
  19. MULTIVITAMINS [VITAMINS NOS] [Concomitant]
     Active Substance: VITAMINS
     Dosage: UNKNOWN
     Route: 065
  20. ROBITUSSIN (GUAIFENESIN) [Concomitant]
     Active Substance: GUAIFENESIN
     Dosage: UNKNOWN
     Route: 065
  21. MUCINEX [Concomitant]
     Active Substance: GUAIFENESIN
     Dosage: UNKNOWN
     Route: 065
  22. TURMERIC [CURCUMA LONGA] [Concomitant]
     Active Substance: HERBALS\TURMERIC
     Dosage: UNKNOWN
     Route: 065
  23. GLASSIA [Suspect]
     Active Substance: .ALPHA.1-PROTEINASE INHIBITOR HUMAN
     Indication: ALPHA-1 ANTITRYPSIN DEFICIENCY
     Dosage: 60 MG/KG, 1/WEEK (950 MG VIAL)
     Route: 042
     Dates: start: 20161121
  24. OXYGEN. [Concomitant]
     Active Substance: OXYGEN
     Dosage: UNKNOWN
     Route: 065
  25. IBUPROFEN. [Concomitant]
     Active Substance: IBUPROFEN
     Dosage: UNKNOWN
     Route: 065

REACTIONS (1)
  - Headache [Unknown]
